FAERS Safety Report 20341416 (Version 3)
Quarter: 2022Q1

REPORT INFORMATION
  Report Type: Report from Study
  Country: US (occurrence: US)
  Receive Date: 20220117
  Receipt Date: 20220314
  Transmission Date: 20220423
  Serious: Yes (Other)
  Sender: FDA-Public Use
  Company Number: US-TAKEDA-2022TUS002253

PATIENT
  Sex: Female
  Weight: 72 kg

DRUGS (35)
  1. HUMAN IMMUNOGLOBULIN G [Suspect]
     Active Substance: HUMAN IMMUNOGLOBULIN G
     Indication: Immunodeficiency common variable
     Dosage: 12 GRAM, 1/WEEK
     Route: 058
     Dates: start: 20211221
  2. DIPHENHYDRAMINE [Concomitant]
     Active Substance: DIPHENHYDRAMINE
  3. NUCALA [Concomitant]
     Active Substance: MEPOLIZUMAB
  4. VITAMIN D3 [Concomitant]
     Active Substance: CHOLECALCIFEROL
  5. DIETARY SUPPLEMENT\PROBIOTICS [Concomitant]
     Active Substance: DIETARY SUPPLEMENT\PROBIOTICS
  6. BUPROPION [Concomitant]
     Active Substance: BUPROPION
  7. METOPROLOL [Concomitant]
     Active Substance: METOPROLOL
  8. EPINEPHRINE [Concomitant]
     Active Substance: EPINEPHRINE
  9. POTASSIUM CHLORIDE [Concomitant]
     Active Substance: POTASSIUM CHLORIDE
  10. BREO ELLIPTA [Concomitant]
     Active Substance: FLUTICASONE FUROATE\VILANTEROL TRIFENATATE
  11. BIOTIN [Concomitant]
     Active Substance: BIOTIN
  12. ALPHA LIPOIC [Concomitant]
  13. HYDROCORTISONE [Concomitant]
     Active Substance: HYDROCORTISONE
  14. ZYRTEC [Concomitant]
     Active Substance: CETIRIZINE HYDROCHLORIDE
  15. VALTREX [Concomitant]
     Active Substance: VALACYCLOVIR HYDROCHLORIDE
  16. SPIRIVA RESPIMAT [Concomitant]
     Active Substance: TIOTROPIUM BROMIDE
  17. ACETAMINOPHEN [Concomitant]
     Active Substance: ACETAMINOPHEN
  18. SINGULAIR [Concomitant]
     Active Substance: MONTELUKAST SODIUM
  19. ZOFRAN [Concomitant]
     Active Substance: ONDANSETRON HYDROCHLORIDE
  20. ALBUTEROL\IPRATROPIUM [Concomitant]
     Active Substance: ALBUTEROL\IPRATROPIUM
  21. MAGNESIUM OXIDE [Concomitant]
     Active Substance: MAGNESIUM OXIDE
  22. CLONAZEPAM [Concomitant]
     Active Substance: CLONAZEPAM
  23. Acetyl l carnitine [Concomitant]
  24. HYDROCHLOROTHIAZIDE [Concomitant]
     Active Substance: HYDROCHLOROTHIAZIDE
  25. CELEBREX [Concomitant]
     Active Substance: CELECOXIB
  26. ALBUTEROL SULFATE [Concomitant]
     Active Substance: ALBUTEROL SULFATE
  27. VITAMIN C [Concomitant]
     Active Substance: ASCORBIC ACID
  28. SERTRALINE [Concomitant]
     Active Substance: SERTRALINE HYDROCHLORIDE
  29. LIDOCAINE [Concomitant]
     Active Substance: LIDOCAINE
  30. PANTOPRAZOLE SODIUM [Concomitant]
     Active Substance: PANTOPRAZOLE SODIUM
  31. CLIMARA PRO [Concomitant]
     Active Substance: ESTRADIOL\LEVONORGESTREL
  32. PEPCID [Concomitant]
     Active Substance: FAMOTIDINE
  33. MAXALT [Concomitant]
     Active Substance: RIZATRIPTAN BENZOATE
  34. METOPROLOL SUCCINATE [Concomitant]
     Active Substance: METOPROLOL SUCCINATE
     Route: 065
  35. SERTRALINE HYDROCHLORIDE [Concomitant]
     Active Substance: SERTRALINE HYDROCHLORIDE
     Route: 065

REACTIONS (2)
  - Pneumonia bacterial [Not Recovered/Not Resolved]
  - Respiratory tract infection [Unknown]
